FAERS Safety Report 24468546 (Version 1)
Quarter: 2024Q4

REPORT INFORMATION
  Report Type: Spontaneous
  Country: US (occurrence: US)
  Receive Date: 20241018
  Receipt Date: 20241018
  Transmission Date: 20250115
  Serious: No
  Sender: SUNOVION
  Company Number: US-SMPA-2024SPA003788AA

PATIENT

DRUGS (4)
  1. ORGOVYX [Suspect]
     Active Substance: RELUGOLIX
     Indication: Prostate cancer
     Dosage: UNK
     Route: 048
  2. ORGOVYX [Suspect]
     Active Substance: RELUGOLIX
     Dosage: 120 MG
     Route: 048
     Dates: end: 202405
  3. LOTREL [Concomitant]
     Active Substance: AMLODIPINE BESYLATE\BENAZEPRIL HYDROCHLORIDE
     Indication: Hypertension
     Dosage: TAKES IT ONCE A DAY IN THE MORNING
     Route: 065
  4. ATORVASTATIN [Concomitant]
     Active Substance: ATORVASTATIN
     Indication: Blood cholesterol
     Dosage: 20 MG, HS
     Route: 065

REACTIONS (6)
  - White blood cell count decreased [Not Recovered/Not Resolved]
  - Weight decreased [Unknown]
  - Hot flush [Not Recovered/Not Resolved]
  - Libido decreased [Not Recovered/Not Resolved]
  - Hyperhidrosis [Unknown]
  - Middle insomnia [Unknown]
